FAERS Safety Report 6258321-6 (Version None)
Quarter: 2009Q3

REPORT INFORMATION
  Report Type: 
  Country: None (occurrence: None)
  Receive Date: 20090707
  Receipt Date: 20090626
  Transmission Date: 20100115
  Serious: Yes (Hospitalization)
  Sender: FDA-Public Use
  Company Number: PHHO2009BE06548

PATIENT
  Sex: Male

DRUGS (6)
  1. RAD 666 RAD+TAB [Suspect]
     Indication: TRANSITIONAL CELL CARCINOMA
     Dosage: 10 UNK, UNK
     Dates: end: 20090516
  2. DAFALGAN [Concomitant]
     Indication: PAIN
     Dosage: 4 G, UNK
     Route: 048
  3. MORPHINE [Concomitant]
     Indication: PAIN
     Dosage: 20 UNK, BID
     Route: 048
  4. DURAGESIC-100 [Concomitant]
     Indication: PAIN
     Dosage: 100 UG, UNK
  5. XANAX [Concomitant]
     Indication: ANXIETY
     Dosage: UNK
     Route: 048
  6. NULYTELY [Concomitant]
     Dosage: UNK

REACTIONS (11)
  - CATHETER PLACEMENT [None]
  - CONFUSIONAL STATE [None]
  - DISEASE PROGRESSION [None]
  - HYPERKALAEMIA [None]
  - OEDEMA PERIPHERAL [None]
  - PYREXIA [None]
  - RENAL FAILURE ACUTE [None]
  - SEPSIS [None]
  - TACHYCARDIA [None]
  - THROMBOCYTOPENIA [None]
  - URINARY TRACT OBSTRUCTION [None]
